FAERS Safety Report 23144322 (Version 1)
Quarter: 2023Q4

REPORT INFORMATION
  Report Type: Spontaneous
  Country: None (occurrence: CN)
  Receive Date: 20231103
  Receipt Date: 20231103
  Transmission Date: 20240109
  Serious: Yes (Life-Threatening, Hospitalization)
  Sender: FDA-Public Use
  Company Number: CN-Jiangsu Hansoh Pharmaceutical Co., Ltd-2147789

PATIENT
  Age: 75 Year
  Weight: 52 kg

DRUGS (2)
  1. GEMCITABINE [Suspect]
     Active Substance: GEMCITABINE
     Indication: Ovarian epithelial cancer stage IV
     Route: 041
     Dates: start: 20231016, end: 20231016
  2. NEDAPLATIN [Concomitant]
     Active Substance: NEDAPLATIN
     Route: 041
     Dates: start: 20231016, end: 20231016

REACTIONS (2)
  - Platelet count decreased [Unknown]
  - Off label use [Unknown]

NARRATIVE: CASE EVENT DATE: 20231016
